FAERS Safety Report 6690748-0 (Version None)
Quarter: 2010Q2

REPORT INFORMATION
  Report Type: 
  Country: None (occurrence: None)
  Receive Date: 20100421
  Receipt Date: 20100409
  Transmission Date: 20101027
  Serious: Yes (Other)
  Sender: FDA-Public Use
  Company Number: BR-PFIZER INC-2010011143

PATIENT
  Age: 60 Year
  Sex: Female
  Weight: 57 kg

DRUGS (6)
  1. CHAMPIX [Suspect]
     Indication: TOBACCO USER
     Dosage: 1 MG
     Route: 048
     Dates: start: 20100102, end: 20100101
  2. CHAMPIX [Suspect]
     Dosage: 0.5 MG (HALF OF A TABLET OF 1 MG)
     Route: 048
     Dates: start: 20100101, end: 20100101
  3. FRONTAL [Concomitant]
     Dosage: UNK
  4. DIAZEPAM [Concomitant]
     Dosage: UNK
  5. HERBAL PREPARATION [Concomitant]
     Dosage: UNK
  6. ALL OTHER THERAPEUTIC PRODUCTS [Concomitant]
     Dosage: UNK

REACTIONS (3)
  - HYPOTENSION [None]
  - VISION BLURRED [None]
  - VISUAL FIELD DEFECT [None]
